FAERS Safety Report 6122533-2 (Version None)
Quarter: 2009Q1

REPORT INFORMATION
  Report Type: 
  Country: None (occurrence: None)
  Receive Date: 20090318
  Receipt Date: 20081211
  Transmission Date: 20090719
  Serious: No
  Sender: FDA-Public Use
  Company Number: US-ASTRAZENECA-2008UW27938

PATIENT
  Age: 65 Year
  Sex: Female

DRUGS (6)
  1. SYMBICORT [Suspect]
     Indication: BRONCHITIS CHRONIC
     Dosage: 160/4.5
     Route: 055
  2. SYMBICORT [Interacting]
     Indication: CHRONIC OBSTRUCTIVE PULMONARY DISEASE
     Dosage: 160/4.5
     Route: 055
  3. SINGULAIR [Interacting]
     Route: 065
  4. SPIRIVA [Interacting]
     Route: 065
  5. COUGH SYRUP [Interacting]
     Route: 048
  6. ANTIBIOTIC [Interacting]
     Route: 065

REACTIONS (2)
  - DRUG INTERACTION [None]
  - HEADACHE [None]
